FAERS Safety Report 23382627 (Version 1)
Quarter: 2024Q1

REPORT INFORMATION
  Report Type: Spontaneous
  Country: CN (occurrence: CN)
  Receive Date: 20240109
  Receipt Date: 20240109
  Transmission Date: 20240410
  Serious: Yes (Other)
  Sender: FDA-Public Use
  Company Number: CN-PFIZER INC-PV202300209770

PATIENT
  Age: 1 Day
  Sex: Male
  Weight: 42 kg

DRUGS (2)
  1. AZITHROMYCIN [Suspect]
     Active Substance: AZITHROMYCIN
     Indication: Anti-infective therapy
     Dosage: 1 DF, 1X/DAY
     Route: 048
     Dates: start: 20231215, end: 20231218
  2. ROXITHROMYCIN [Suspect]
     Active Substance: ROXITHROMYCIN
     Indication: Anti-infective therapy
     Dosage: 1 DF, 1X/DAY
     Route: 048
     Dates: start: 20231215, end: 20231218

REACTIONS (2)
  - Liver injury [Recovering/Resolving]
  - Off label use [Unknown]

NARRATIVE: CASE EVENT DATE: 20231215
